FAERS Safety Report 21513089 (Version 2)
Quarter: 2022Q4

REPORT INFORMATION
  Report Type: Spontaneous
  Country: JP (occurrence: JP)
  Receive Date: 20221027
  Receipt Date: 20221122
  Transmission Date: 20230113
  Serious: Yes (Hospitalization, Other)
  Sender: FDA-Public Use
  Company Number: JP-ASTELLAS-2022JP015740

PATIENT
  Sex: Female
  Weight: 1.354 kg

DRUGS (2)
  1. PROGRAF [Suspect]
     Active Substance: TACROLIMUS
     Indication: Lupus nephritis
     Dosage: 3 MG/DAY, UNKNOWN FREQ.
     Route: 064
  2. PROGRAF [Suspect]
     Active Substance: TACROLIMUS
     Dosage: 4 MG/DAY, UNKNOWN FREQ.
     Route: 065

REACTIONS (3)
  - Premature baby [Recovered/Resolved]
  - Low birth weight baby [Unknown]
  - Foetal exposure during pregnancy [Unknown]
